FAERS Safety Report 17779189 (Version 1)
Quarter: 2020Q2

REPORT INFORMATION
  Report Type: Spontaneous
  Country: GB (occurrence: GB)
  Receive Date: 20200513
  Receipt Date: 20200513
  Transmission Date: 20200714
  Serious: Yes (Hospitalization, Other)
  Sender: FDA-Public Use
  Company Number: GB-APOTEX-2020AP010797

PATIENT

DRUGS (2)
  1. SEROXAT [Suspect]
     Active Substance: PAROXETINE HYDROCHLORIDE
     Indication: DEPRESSION
     Dosage: UNK
     Route: 065
     Dates: end: 2008
  2. LITHIUM. [Suspect]
     Active Substance: LITHIUM
     Indication: DEPRESSION
     Dosage: UNK
     Route: 065

REACTIONS (21)
  - Drug withdrawal syndrome [Unknown]
  - Psychiatric symptom [Unknown]
  - Drug dependence [Unknown]
  - Nervous system disorder [Unknown]
  - Encephalitis [Unknown]
  - Loss of personal independence in daily activities [Unknown]
  - Anxiety [Unknown]
  - Insomnia [Unknown]
  - Condition aggravated [Unknown]
  - Photophobia [Unknown]
  - Restlessness [Unknown]
  - Mobility decreased [Unknown]
  - Myalgia [Unknown]
  - Asthenia [Unknown]
  - Chronic fatigue syndrome [Unknown]
  - Hyperacusis [Unknown]
  - Drug ineffective [Unknown]
  - Patient dissatisfaction with treatment [Unknown]
  - Gait disturbance [Unknown]
  - Paraesthesia [Unknown]
  - Patient isolation [Unknown]
